FAERS Safety Report 9820446 (Version 1)
Quarter: 2014Q1

REPORT INFORMATION
  Report Type: Spontaneous
  Country: US (occurrence: None)
  Receive Date: 20140114
  Receipt Date: 20140114
  Transmission Date: 20141002
  Serious: Yes (Other)
  Sender: FDA-Public Use
  Company Number: None

PATIENT
  Sex: 0

DRUGS (1)
  1. RESTASIS [Suspect]

REACTIONS (4)
  - Dry mouth [None]
  - Throat irritation [None]
  - Lacrimation increased [None]
  - Urine analysis abnormal [None]
